FAERS Safety Report 20701552 (Version 7)
Quarter: 2025Q4

REPORT INFORMATION
  Report Type: Report from Study
  Country: US (occurrence: US)
  Receive Date: 20220412
  Receipt Date: 20251218
  Transmission Date: 20260117
  Serious: Yes (Hospitalization)
  Sender: PFIZER
  Company Number: US-PFIZER INC-202101070652

PATIENT
  Age: 72 Year
  Sex: Female
  Weight: 63.492 kg

DRUGS (6)
  1. IBRANCE [Suspect]
     Active Substance: PALBOCICLIB
     Indication: Breast cancer female
     Dosage: 125 MG
     Dates: start: 20210127
  2. IBRANCE [Suspect]
     Active Substance: PALBOCICLIB
     Dosage: 125 MG
     Dates: start: 202105
  3. IBRANCE [Suspect]
     Active Substance: PALBOCICLIB
     Dosage: TAKE 125 MG BY MOUTH ONCE DAILY. ON DAYS 1-21 OF EACH 28 DAY CYCLE
     Route: 048
     Dates: start: 20241118
  4. ARIMIDEX [Concomitant]
     Active Substance: ANASTROZOLE
     Dosage: UNK
     Dates: start: 202001
  5. METHYL B COMPLEX [Concomitant]
     Dosage: UNK
  6. CHOLECALCIFEROL [Concomitant]
     Active Substance: CHOLECALCIFEROL
     Dosage: UNK

REACTIONS (9)
  - Lacrimation increased [Unknown]
  - Vision blurred [Recovered/Resolved]
  - Pollakiuria [Not Recovered/Not Resolved]
  - White blood cell count decreased [Not Recovered/Not Resolved]
  - Peripheral swelling [Unknown]
  - Dry eye [Unknown]
  - Balance disorder [Unknown]
  - Dysphagia [Recovered/Resolved]
  - Fatigue [Unknown]
